FAERS Safety Report 24298784 (Version 2)
Quarter: 2024Q3

REPORT INFORMATION
  Report Type: Spontaneous
  Country: US (occurrence: US)
  Receive Date: 20240909
  Receipt Date: 20240925
  Transmission Date: 20241017
  Serious: No
  Sender: AMGEN
  Company Number: US-AMGEN-USASP2024177879

PATIENT
  Age: 87 Year
  Sex: Female

DRUGS (2)
  1. REPATHA [Suspect]
     Active Substance: EVOLOCUMAB
     Indication: Blood cholesterol abnormal
     Dosage: 140 MILLIGRAM, Q2WK
     Route: 058
     Dates: start: 20240628, end: 202407
  2. QUNOL LIQUID COQ10 [Concomitant]
     Dosage: UNK

REACTIONS (2)
  - Constipation [Not Recovered/Not Resolved]
  - Accidental exposure to product [Unknown]

NARRATIVE: CASE EVENT DATE: 20240628
